FAERS Safety Report 8743487 (Version 4)
Quarter: 2013Q1

REPORT INFORMATION
  Report Type: Report from Study
  Country: US (occurrence: US)
  Receive Date: 20120824
  Receipt Date: 20130301
  Transmission Date: 20140127
  Serious: Yes (Hospitalization)
  Sender: FDA-Public Use
  Company Number: US-ROCHE-1078647

PATIENT
  Age: 32 Year
  Sex: Female

DRUGS (32)
  1. PEG-INTERFERON ALFA 2A [Suspect]
     Indication: CHRONIC HEPATITIS C
     Dosage: TDD:180 MICROGRAM, LAST DOSE PRIOR TO SAE: 03/MAY/2012
     Route: 058
     Dates: start: 20120207
  2. RIBAVIRIN [Suspect]
     Indication: CHRONIC HEPATITIS C
     Dosage: TDD: 1200 MG, LAST DOSE PRIOR  TO SAE: 03/MAY/2012
     Route: 048
     Dates: start: 20120207
  3. BLINDED INX-08189 [Suspect]
     Indication: CHRONIC HEPATITIS C
     Dosage: LAST DOSE PRIOR TO SAE: 03/MAY/2012
     Route: 048
     Dates: start: 20120207
  4. HYDROCODONE BITARTRATE [Concomitant]
     Dosage: 1 TO 2 TABLETS AS NEEDED
     Route: 065
     Dates: start: 20111224
  5. LIDOCAINE [Concomitant]
     Route: 065
     Dates: start: 20120124, end: 20120124
  6. FENTANYL [Concomitant]
     Route: 065
     Dates: start: 20120124, end: 20120124
  7. IBUPROFEN [Concomitant]
     Route: 048
     Dates: start: 20120207, end: 20120207
  8. IBUPROFEN [Concomitant]
     Route: 048
     Dates: start: 20120214, end: 20120214
  9. IBUPROFEN [Concomitant]
     Route: 048
     Dates: start: 20120215, end: 20120215
  10. IBUPROFEN [Concomitant]
     Route: 048
     Dates: start: 20120223
  11. TYLENOL [Concomitant]
     Route: 048
     Dates: start: 20120210, end: 20120210
  12. TYLENOL [Concomitant]
     Route: 065
     Dates: start: 20120223, end: 20120223
  13. BENADRYL [Concomitant]
     Route: 065
     Dates: start: 20120214, end: 20120216
  14. SUMATRIPTAN [Concomitant]
     Route: 058
     Dates: start: 20120225, end: 20120225
  15. ONDANSETRON [Concomitant]
     Route: 048
     Dates: start: 20120225, end: 20120225
  16. BENZOCAINE [Concomitant]
     Route: 061
     Dates: start: 20120305, end: 20120312
  17. AMOXICILLIN [Concomitant]
     Route: 048
     Dates: start: 20120307, end: 20120314
  18. ROBITUSSIN (CANADA) [Concomitant]
     Route: 048
     Dates: start: 20120327
  19. ZOSYN [Concomitant]
  20. AMBIEN [Concomitant]
  21. DILAUDID [Concomitant]
  22. ZOFRAN [Concomitant]
  23. NORCO [Concomitant]
  24. METHYLPREDNISONE (UNK INGREDIENTS) [Concomitant]
     Route: 065
  25. PREDNISONE [Concomitant]
  26. LISINOPRIL [Concomitant]
  27. METOPROLOL TARTRATE [Concomitant]
     Route: 065
  28. MAGNESIUM OXIDE [Concomitant]
  29. FERROUS GLUCONATE [Concomitant]
  30. LORAZEPAM [Concomitant]
  31. THERAFLU (UNK INGREDIENTS) [Concomitant]
     Route: 047
     Dates: start: 20120327
  32. ACETAMINOPHEN [Concomitant]
     Route: 065

REACTIONS (14)
  - Renal failure acute [Not Recovered/Not Resolved]
  - Cholecystitis [Recovered/Resolved]
  - Pyrexia [Unknown]
  - Malaise [Unknown]
  - Dialysis [Unknown]
  - Cardiomyopathy [Recovered/Resolved]
  - Ischaemic hepatitis [Unknown]
  - Cardiac failure congestive [Recovered/Resolved]
  - Thrombocytopenia [Recovered/Resolved]
  - Ascites [Recovered/Resolved]
  - Hepatic failure [Unknown]
  - Pulmonary embolism [Unknown]
  - Heparin-induced thrombocytopenia [Recovered/Resolved]
  - Pulmonary infarction [Recovered/Resolved]
